FAERS Safety Report 8732579 (Version 2)
Quarter: 2012Q4

REPORT INFORMATION
  Report Type: 
  Country: US (occurrence: US)
  Receive Date: 20120820
  Receipt Date: 20120904
  Transmission Date: 20130627
  Serious: No
  Sender: FDA-Public Use
  Company Number: US-PFIZER INC-2012199363

PATIENT
  Age: 17 Year
  Sex: Female
  Weight: 84 kg

DRUGS (3)
  1. GENOTROPIN [Suspect]
     Indication: HYPOPITUITARISM
     Dosage: 0.4 mg, 1x/day
     Route: 058
     Dates: start: 20120719, end: 20120801
  2. GENOTROPIN [Suspect]
     Dosage: 0.4 mg, 1x/day
     Route: 058
     Dates: start: 201208, end: 201208
  3. GENOTROPIN [Suspect]
     Dosage: 0.2 mg, 1x/day
     Route: 058
     Dates: start: 201208

REACTIONS (1)
  - Headache [Unknown]
